FAERS Safety Report 6169260-3 (Version None)
Quarter: 2009Q2

REPORT INFORMATION
  Report Type: 
  Country: None (occurrence: None)
  Receive Date: 20090424
  Receipt Date: 20090420
  Transmission Date: 20091009
  Serious: Yes (Life-Threatening, Other)
  Sender: FDA-Public Use
  Company Number: 2009SP008545

PATIENT
  Age: 13 Year
  Sex: Female

DRUGS (1)
  1. CORICIDIN HBP COUGH + COLD (CHLORPHENIRAMINE MALEATE/DEXTROMETHORPHAN [Suspect]
     Dosage: 36 MG;ONCE;PO
     Route: 048
     Dates: start: 20090418

REACTIONS (7)
  - ABASIA [None]
  - APPARENT DEATH [None]
  - BLOOD PRESSURE INCREASED [None]
  - HALLUCINATION [None]
  - HEART RATE IRREGULAR [None]
  - INCORRECT DOSE ADMINISTERED [None]
  - RESPIRATORY DISORDER [None]
